FAERS Safety Report 18926864 (Version 1)
Quarter: 2021Q1

REPORT INFORMATION
  Report Type: Spontaneous
  Country: US (occurrence: US)
  Receive Date: 20210222
  Receipt Date: 20210222
  Transmission Date: 20210420
  Serious: Yes (Death)
  Sender: FDA-Public Use
  Company Number: None

PATIENT
  Age: 88 Year
  Sex: Male
  Weight: 91.6 kg

DRUGS (18)
  1. GABAPENTIN. [Concomitant]
     Active Substance: GABAPENTIN
  2. FISH OIL [Concomitant]
     Active Substance: FISH OIL
  3. CHONDROITIN SULFATE A [Concomitant]
     Active Substance: CHONDROITIN SULFATE (CHICKEN)
  4. IPRATROPIUM [Concomitant]
     Active Substance: IPRATROPIUM
  5. BAMLANIVIMAB. [Suspect]
     Active Substance: BAMLANIVIMAB
     Indication: SARS-COV-2 TEST POSITIVE
     Route: 042
     Dates: start: 20210208, end: 20210208
  6. LUMIGAN [Concomitant]
     Active Substance: BIMATOPROST
  7. MULTIVITAMIN [Concomitant]
     Active Substance: VITAMINS
  8. SIMVASTATIN. [Concomitant]
     Active Substance: SIMVASTATIN
  9. MAXZIDE [Concomitant]
     Active Substance: HYDROCHLOROTHIAZIDE\TRIAMTERENE
  10. CITRACAL + D3 [Concomitant]
  11. LOSARTAN. [Concomitant]
     Active Substance: LOSARTAN
  12. NITROGLYCERIN. [Concomitant]
     Active Substance: NITROGLYCERIN
  13. VIAGRA [Concomitant]
     Active Substance: SILDENAFIL CITRATE
  14. COVID?19 VACCINE NOS. [Suspect]
     Active Substance: COVID-19 VACCINE NOS
     Route: 030
  15. LEVOTHYROXINE. [Concomitant]
     Active Substance: LEVOTHYROXINE
  16. METOPROLOL. [Concomitant]
     Active Substance: METOPROLOL
  17. RANOLAZINE. [Concomitant]
     Active Substance: RANOLAZINE
  18. ASPIRIN. [Concomitant]
     Active Substance: ASPIRIN

REACTIONS (2)
  - SARS-CoV-2 test positive [None]
  - COVID-19 [None]

NARRATIVE: CASE EVENT DATE: 20210209
